FAERS Safety Report 24593476 (Version 2)
Quarter: 2024Q4

REPORT INFORMATION
  Report Type: Report from Study
  Country: CA (occurrence: CA)
  Receive Date: 20241108
  Receipt Date: 20241115
  Transmission Date: 20250115
  Serious: Yes (Death)
  Sender: TAIHO ONCOLOGY INC
  Company Number: CA-TAIHOP-2024-010496

PATIENT
  Age: 87 Year
  Sex: Male

DRUGS (1)
  1. INQOVI [Suspect]
     Active Substance: CEDAZURIDINE\DECITABINE
     Indication: Myelodysplastic syndrome
     Dosage: DAYS 1-5, EVERY 28 DAYS?(35MG DECITABINE + 100MG CEDAZURIDINE)
     Route: 048
     Dates: start: 20241006

REACTIONS (1)
  - Viral infection [Fatal]
